FAERS Safety Report 5722908-7 (Version None)
Quarter: 2008Q2

REPORT INFORMATION
  Report Type: 
  Country: None (occurrence: None)
  Receive Date: 20080425
  Receipt Date: 20080411
  Transmission Date: 20081010
  Serious: Yes (Hospitalization)
  Sender: FDA-Public Use
  Company Number: S08-SWE-00705-01

PATIENT
  Age: 54 Year
  Sex: Male

DRUGS (5)
  1. ESCITALOPRAM [Suspect]
     Indication: DEPRESSION
     Dosage: 25 MG QD PO
     Route: 048
  2. ENOXAPARIN SODIUM [Suspect]
     Indication: THROMBOSIS PROPHYLAXIS
     Dosage: 100 MG ONCE IV
     Route: 042
     Dates: start: 20080120, end: 20080120
  3. OMEGA 3 (FISH OIL) [Suspect]
     Dosage: 4 MG QD PO
     Route: 048
  4. VENTOLIN [Concomitant]
  5. PULMICORT [Concomitant]

REACTIONS (2)
  - HAEMOGLOBIN DECREASED [None]
  - POST PROCEDURAL HAEMORRHAGE [None]
